FAERS Safety Report 5840405-5 (Version None)
Quarter: 2008Q3

REPORT INFORMATION
  Report Type: 
  Country: None (occurrence: None)
  Receive Date: 20080811
  Receipt Date: 20080729
  Transmission Date: 20090109
  Serious: Yes (Death, Hospitalization, Other)
  Sender: FDA-Public Use
  Company Number: DE-AMGEN-UK298269

PATIENT
  Age: 78 Year
  Sex: Male

DRUGS (3)
  1. KINERET [Suspect]
     Indication: RHEUMATOID ARTHRITIS
     Route: 065
     Dates: start: 20050601, end: 20051001
  2. LEFLUNOMIDE [Suspect]
     Route: 065
     Dates: start: 20060801
  3. RITUXIMAB [Concomitant]
     Route: 065
     Dates: start: 20051201, end: 20051201

REACTIONS (2)
  - PNEUMONIA [None]
  - SEPTIC SHOCK [None]
